FAERS Safety Report 24220529 (Version 1)
Quarter: 2024Q3

REPORT INFORMATION
  Report Type: Spontaneous
  Country: IT (occurrence: IT)
  Receive Date: 20240818
  Receipt Date: 20240818
  Transmission Date: 20241016
  Serious: Yes (Hospitalization, Other)
  Sender: AUROBINDO
  Company Number: IT-AUROBINDO-AUR-APL-2024-039547

PATIENT
  Age: 30 Year
  Sex: Female
  Weight: 50 kg

DRUGS (1)
  1. BUPIVACAINE [Suspect]
     Active Substance: BUPIVACAINE
     Indication: Anaesthesia
     Dosage: 0.75% (2 ML - 15 MG)
     Route: 065

REACTIONS (8)
  - Arrhythmia [Unknown]
  - Cardiac arrest [Unknown]
  - Chest pain [Unknown]
  - Cardiac failure [Unknown]
  - Cardiogenic shock [Unknown]
  - Respiratory failure [Unknown]
  - Poisoning [Unknown]
  - Metabolic acidosis [Unknown]
